FAERS Safety Report 6769622-7 (Version None)
Quarter: 2010Q2

REPORT INFORMATION
  Report Type: 
  Country: None (occurrence: None)
  Receive Date: 20100610
  Receipt Date: 20100526
  Transmission Date: 20101027
  Serious: Yes (Life-Threatening, Hospitalization)
  Sender: FDA-Public Use
  Company Number: BCN-AS-2010-RR-176

PATIENT
  Age: 84 Year
  Sex: Female
  Weight: 72 kg

DRUGS (11)
  1. SPIRONOLACTONE [Suspect]
     Indication: HYPERTENSION
     Dosage: 25 MG;QD
     Dates: start: 20091006, end: 20091126
  2. XIPAMID [Suspect]
     Indication: HYPERTENSION
     Dosage: 10 MG;QD
     Route: 048
     Dates: start: 20091006, end: 20091126
  3. TORSEMIDE [Suspect]
     Indication: HYPERTENSION
     Dosage: 5 MG, QD
     Route: 048
     Dates: start: 20091006, end: 20091126
  4. RAMIPRIL [Suspect]
     Indication: HYPERTENSION
     Dosage: 2.5MG, QD
     Route: 048
     Dates: start: 20091006, end: 20091126
  5. MICTONORM (PROPIVERINE HYDROCHLORIDE) [Suspect]
     Indication: STRESS URINARY INCONTINENCE
     Route: 048
     Dates: start: 20091006, end: 20091126
  6. MELPERON (MELPERONE HYDROCHLORIDE) [Suspect]
     Indication: VASCULAR DEMENTIA
     Dosage: 25 MG, QD;
     Route: 048
     Dates: start: 20091026, end: 20091126
  7. ZOLPIDEM [Concomitant]
  8. PANTOPRAZOL 40MG (PANTOPRAZOL) GASTRO-RESISTANT TABLET [Concomitant]
  9. CLOPIDOGREL 75MG (CLOPIDOGREL) FILM COATED TABLET [Concomitant]
  10. SIMVASTATIN (SIMVASTATIN) FILM-COATED TABLET [Concomitant]
  11. AKINETON [Concomitant]

REACTIONS (2)
  - DRUG INTERACTION [None]
  - RENAL FAILURE ACUTE [None]
